FAERS Safety Report 8818987 (Version 8)
Quarter: 2013Q3

REPORT INFORMATION
  Report Type: Spontaneous
  Country: US (occurrence: US)
  Receive Date: 20121001
  Receipt Date: 20130802
  Transmission Date: 20140515
  Serious: Yes (Hospitalization)
  Sender: FDA-Public Use
  Company Number: US-JNJFOC-20120909955

PATIENT
  Sex: Male
  Weight: 81.65 kg

DRUGS (7)
  1. RISPERDAL [Suspect]
     Indication: BIPOLAR DISORDER
     Route: 048
     Dates: start: 201011, end: 20120918
  2. RISPERDAL [Suspect]
     Indication: SCHIZOPHRENIA
     Route: 048
     Dates: start: 201011, end: 20120918
  3. RISPERDAL M TAB [Suspect]
     Indication: PRODUCT USED FOR UNKNOWN INDICATION
     Route: 048
  4. SEROQUEL [Suspect]
     Indication: PRODUCT USED FOR UNKNOWN INDICATION
     Route: 048
  5. DEPAKOTE [Suspect]
     Indication: PRODUCT USED FOR UNKNOWN INDICATION
     Route: 048
  6. PAROXETINE [Suspect]
     Indication: PRODUCT USED FOR UNKNOWN INDICATION
     Route: 048
  7. KLONOPIN [Concomitant]
     Indication: FEELING OF RELAXATION
     Route: 048

REACTIONS (8)
  - Blindness [Recovered/Resolved]
  - Laceration [Unknown]
  - Genital burning sensation [Not Recovered/Not Resolved]
  - Adverse drug reaction [Unknown]
  - Erectile dysfunction [Unknown]
  - Penile pain [Unknown]
  - Eye disorder [Not Recovered/Not Resolved]
  - Therapeutic response decreased [Unknown]
